FAERS Safety Report 20316232 (Version 1)
Quarter: 2022Q1

REPORT INFORMATION
  Report Type: Spontaneous
  Country: IN (occurrence: IN)
  Receive Date: 20220110
  Receipt Date: 20220110
  Transmission Date: 20220424
  Serious: No
  Sender: FDA-Public Use
  Company Number: IN-LUPIN PHARMACEUTICALS INC.-2021-26587

PATIENT
  Age: 61 Year
  Sex: Male

DRUGS (7)
  1. CEFTRIAXONE [Suspect]
     Active Substance: CEFTRIAXONE
     Indication: COVID-19
     Dosage: 1 GRAM, BID
     Route: 042
  2. IVERMECTIN [Suspect]
     Active Substance: IVERMECTIN
     Indication: COVID-19
     Dosage: 12 MILLIGRAM, BID (FOR 5 DAYS)
     Route: 065
  3. ZINC [Suspect]
     Active Substance: ZINC
     Indication: COVID-19
     Dosage: 50 MILLIGRAM, QD
     Route: 048
  4. VITAMIN C [Suspect]
     Active Substance: ASCORBIC ACID
     Indication: COVID-19
     Dosage: 500 MILLIGRAM, BID
     Route: 065
  5. LITHIUM [Concomitant]
     Active Substance: LITHIUM
     Indication: Bipolar disorder
     Dosage: 900 MILLIGRAM, QD
     Route: 065
  6. QUETIAPINE [Concomitant]
     Active Substance: QUETIAPINE
     Indication: Bipolar disorder
     Dosage: 300 MILLIGRAM, QD
     Route: 065
  7. FLUPENTIXOL [Concomitant]
     Active Substance: FLUPENTIXOL
     Indication: Bipolar disorder
     Dosage: 40 MILLIGRAM
     Route: 065

REACTIONS (1)
  - Off label use [Unknown]
